FAERS Safety Report 20377546 (Version 1)
Quarter: 2022Q1

REPORT INFORMATION
  Report Type: Spontaneous
  Country: US (occurrence: US)
  Receive Date: 20220126
  Receipt Date: 20220126
  Transmission Date: 20220423
  Serious: No
  Sender: FDA-Public Use
  Company Number: US-ALLERGAN-2128901US

PATIENT

DRUGS (1)
  1. UBRELVY [Suspect]
     Active Substance: UBROGEPANT
     Indication: Headache
     Dosage: UNK
     Dates: start: 20210720

REACTIONS (3)
  - Hypertension [Unknown]
  - Headache [Unknown]
  - Migraine [Unknown]

NARRATIVE: CASE EVENT DATE: 20210721
